FAERS Safety Report 24772451 (Version 1)
Quarter: 2024Q4

REPORT INFORMATION
  Report Type: Spontaneous
  Country: CN (occurrence: CN)
  Receive Date: 20241224
  Receipt Date: 20241224
  Transmission Date: 20250115
  Serious: Yes (Hospitalization, Other)
  Sender: ASCEND THERAPEUTICS US, LLC
  Company Number: CN-Ascend Therapeutics US, LLC-2167687

PATIENT
  Age: 68 Year
  Sex: Female

DRUGS (2)
  1. ESTROGEL [Suspect]
     Active Substance: ESTRADIOL
     Indication: Atrophic vulvovaginitis
     Dates: start: 20241203, end: 20241205
  2. ESTRADIOL [Suspect]
     Active Substance: ESTRADIOL
     Dates: start: 20241203, end: 20241205

REACTIONS (3)
  - Dermatitis allergic [Not Recovered/Not Resolved]
  - Vulval oedema [Not Recovered/Not Resolved]
  - Dermatitis infected [Not Recovered/Not Resolved]

NARRATIVE: CASE EVENT DATE: 20241206
